FAERS Safety Report 17903670 (Version 3)
Quarter: 2020Q3

REPORT INFORMATION
  Report Type: Spontaneous
  Country: DE (occurrence: DE)
  Receive Date: 20200616
  Receipt Date: 20200701
  Transmission Date: 20201103
  Serious: Yes (Hospitalization, Other)
  Sender: FDA-Public Use
  Company Number: DE-ELI_LILLY_AND_COMPANY-DE201910015749

PATIENT
  Age: 55 Year

DRUGS (37)
  1. PEMETREXED. [Suspect]
     Active Substance: PEMETREXED
     Dosage: 500 MILLIGRAM/SQ. METEREVERY 3 WEEKS ;2 CYCLES, SECOND?LINE THERAP; FORTH CYCLE
     Route: 065
     Dates: start: 20190704, end: 20190704
  2. PEMBROLIZUMAB. [Suspect]
     Active Substance: PEMBROLIZUMAB
     Indication: NON-SMALL CELL LUNG CANCER METASTATIC
     Dosage: 200 MILLIGRAM, EVERY 3 WEEKS; FIRST CYCLE
     Route: 065
     Dates: start: 20190502, end: 20190502
  3. NINTEDANIB [Suspect]
     Active Substance: NINTEDANIB
     Dosage: 100MG, TWO, TWICE DAILY ORAL FROM DAY 2 UNTIL DAY 21, EVERY 3 WEEKS; SECOND CYCLE
     Route: 048
     Dates: start: 20191007, end: 20191007
  4. CARBOPLATIN. [Suspect]
     Active Substance: CARBOPLATIN
     Dosage: FIRST?LINE THERAPY; AUC5, ON DAY1, EVERY 3 WEEKS; SECOND CYCLE
     Route: 065
     Dates: start: 20190523, end: 20190523
  5. PEMETREXED. [Suspect]
     Active Substance: PEMETREXED
     Dosage: 500 MILLIGRAM/SQ. METEREVERY 3 WEEKS ;SECOND?LINE THERAP; SECOND CYCLE
     Route: 065
     Dates: start: 20190523, end: 20190523
  6. DOCETAXEL. [Suspect]
     Active Substance: DOCETAXEL
     Indication: NON-SMALL CELL LUNG CANCER METASTATIC
     Dosage: 75MG/M2, D1, EVERY 3 WEEKS; FIRST CYCLE
     Route: 065
     Dates: start: 20190912, end: 20190912
  7. DOCETAXEL. [Suspect]
     Active Substance: DOCETAXEL
     Dosage: 4?6TH CYCLE
     Route: 065
     Dates: start: 20191119, end: 20200102
  8. DOCETAXEL. [Suspect]
     Active Substance: DOCETAXEL
     Dosage: 13TH CYCLE
     Route: 065
     Dates: start: 20200526, end: 20200526
  9. PEMBROLIZUMAB. [Suspect]
     Active Substance: PEMBROLIZUMAB
     Dosage: 200 MILLIGRAM, EVERY 3 WEEKS; SIXTH CYCLE
     Route: 065
     Dates: start: 20190822, end: 20190822
  10. NINTEDANIB [Suspect]
     Active Substance: NINTEDANIB
     Indication: NON-SMALL CELL LUNG CANCER
     Dosage: 100MG, TWO, TWICE DAILY ORAL FROM DAY 2 UNTIL DAY 21, EVERY 3 WEEKS;FIRST CYCLE
     Route: 048
     Dates: start: 20190912, end: 20190912
  11. NINTEDANIB [Suspect]
     Active Substance: NINTEDANIB
     Dosage: 10?12TH CYCLE
     Route: 065
     Dates: start: 20200326, end: 20200507
  12. CARBOPLATIN. [Suspect]
     Active Substance: CARBOPLATIN
     Dosage: FIRST?LINE THERAPY; AUC5, ON DAY1, EVERY 3 WEEKS; FIFTH CYCLE
     Route: 065
     Dates: start: 20190725, end: 20190725
  13. PEMETREXED. [Suspect]
     Active Substance: PEMETREXED
     Indication: NON-SMALL CELL LUNG CANCER METASTATIC
     Dosage: UNK UNK, UNKNOWN
     Route: 065
  14. PEMETREXED. [Suspect]
     Active Substance: PEMETREXED
     Indication: LUNG NEOPLASM MALIGNANT
     Dosage: 500 MILLIGRAM/SQ. METEREVERY 3 WEEKS ;SECOND?LINE THERAP; FIRST CYCLE
     Route: 065
     Dates: start: 20190502
  15. NINTEDANIB [Suspect]
     Active Substance: NINTEDANIB
     Dosage: 4TH?5TH CYCLE
     Route: 065
     Dates: start: 20191119, end: 20200102
  16. NINTEDANIB [Suspect]
     Active Substance: NINTEDANIB
     Dosage: 13TH CYCLE
     Route: 065
     Dates: start: 20200526, end: 20200526
  17. PEMETREXED. [Suspect]
     Active Substance: PEMETREXED
     Dosage: 500 MILLIGRAM/SQ. METEREVERY 3 WEEKS ;SECOND?LINE THERAP; THIRD CYCLE
     Route: 065
     Dates: start: 20190613, end: 20190613
  18. DOCETAXEL. [Suspect]
     Active Substance: DOCETAXEL
     Indication: LUNG NEOPLASM MALIGNANT
     Dosage: UNK UNK, CYCLICAL
     Route: 065
     Dates: start: 20180123, end: 20180223
  19. DOCETAXEL. [Suspect]
     Active Substance: DOCETAXEL
     Dosage: 75MG/M2, D1, EVERY 3 WEEKS; SECOND CYCLE
     Route: 065
     Dates: start: 20191007, end: 20191007
  20. DOCETAXEL. [Suspect]
     Active Substance: DOCETAXEL
     Dosage: 10?12TH CYCLE
     Route: 065
     Dates: start: 20200326, end: 20200507
  21. PEMBROLIZUMAB. [Suspect]
     Active Substance: PEMBROLIZUMAB
     Dosage: 200 MILLIGRAM, EVERY 3 WEEKS; SECOND CYCLE
     Route: 065
     Dates: start: 20190523, end: 20190523
  22. PEMBROLIZUMAB. [Suspect]
     Active Substance: PEMBROLIZUMAB
     Dosage: 200 MILLIGRAM, EVERY 3 WEEKS; FORTH CYCLE
     Route: 065
     Dates: start: 20190704, end: 20190704
  23. NINTEDANIB [Suspect]
     Active Substance: NINTEDANIB
     Indication: LUNG NEOPLASM MALIGNANT
     Dosage: UNK UNK, CYCLICAL
     Route: 065
     Dates: start: 20180123, end: 20180223
  24. CARBOPLATIN. [Suspect]
     Active Substance: CARBOPLATIN
     Indication: NON-SMALL CELL LUNG CANCER METASTATIC
     Dosage: FIRST?LINE THERAPY, AUC5, ON DAY 1, EVERY 3 WEEKS, FIRST CYCLEUNK
     Route: 065
     Dates: start: 20190502, end: 20190502
  25. CARBOPLATIN. [Suspect]
     Active Substance: CARBOPLATIN
     Dosage: FIRST?LINE THERAPY; AUC5, ON DAY1, EVERY 3 WEEKS; THIRD CYCLE
     Route: 065
     Dates: start: 20190613, end: 20190613
  26. PEMETREXED. [Suspect]
     Active Substance: PEMETREXED
     Dosage: 500 MILLIGRAM/SQ. METEREVERY 3 WEEKS ;2 CYCLES, SECOND?LINE THERAP; FIFTH CYCLE
     Route: 065
     Dates: start: 20190725, end: 20190725
  27. DOCETAXEL. [Suspect]
     Active Substance: DOCETAXEL
     Dosage: 7TH?9TH CYCLE
     Route: 065
     Dates: start: 20200123, end: 20200305
  28. PEMBROLIZUMAB. [Suspect]
     Active Substance: PEMBROLIZUMAB
     Dosage: 200 MILLIGRAM, EVERY 3 WEEKS; THIRD CYCLE
     Route: 065
     Dates: start: 20190613, end: 20190613
  29. PEMBROLIZUMAB. [Suspect]
     Active Substance: PEMBROLIZUMAB
     Dosage: 200 MILLIGRAM, EVERY 3 WEEKS; FIFTH CYCLE
     Route: 065
     Dates: start: 20190725, end: 20190725
  30. NINTEDANIB [Suspect]
     Active Substance: NINTEDANIB
     Dosage: 7TH?9TH CYCLE
     Route: 065
     Dates: start: 20200123, end: 20200305
  31. CARBOPLATIN. [Suspect]
     Active Substance: CARBOPLATIN
     Indication: LUNG NEOPLASM MALIGNANT
     Dosage: UNK UNK, UNKNOWN
     Route: 065
  32. CARBOPLATIN. [Suspect]
     Active Substance: CARBOPLATIN
     Dosage: FIRST?LINE THERAPY; AUC5, ON DAY1, EVERY 3 WEEKS; FORTH CYCLE
     Route: 065
     Dates: start: 20190704, end: 20190704
  33. PEMETREXED. [Suspect]
     Active Substance: PEMETREXED
     Dosage: 500 MILLIGRAM/SQ. METEREVERY 3 WEEKS ;2 CYCLES, SECOND?LINE THERAP; SIXTH CYCLE
     Route: 065
     Dates: start: 20190822, end: 20190822
  34. DOCETAXEL. [Suspect]
     Active Substance: DOCETAXEL
     Dosage: 75MG/M2, D1, EVERY 3 WEEKS; THIRD CYCLE
     Route: 065
     Dates: start: 20191028, end: 20191028
  35. PEMBROLIZUMAB. [Suspect]
     Active Substance: PEMBROLIZUMAB
     Indication: LUNG NEOPLASM MALIGNANT
     Dosage: UNK UNK, UNKNOWN
     Route: 065
  36. NINTEDANIB [Suspect]
     Active Substance: NINTEDANIB
     Dosage: 100MG, TWO, TWICE DAILY ORAL FROM DAY 2 UNTIL DAY 21, EVERY 3 WEEKS; THIRD CYCLE
     Route: 048
     Dates: start: 20191028, end: 20191028
  37. CARBOPLATIN. [Suspect]
     Active Substance: CARBOPLATIN
     Dosage: FIRST?LINE THERAPY; AUC5, ON DAY1, EVERY 3 WEEKS; SIXTH CYCLE
     Route: 065
     Dates: start: 20190822, end: 20190822

REACTIONS (10)
  - Pneumonitis [Unknown]
  - Off label use [Unknown]
  - Diarrhoea [Unknown]
  - Febrile neutropenia [Unknown]
  - Nausea [Unknown]
  - Neuropathy peripheral [Unknown]
  - Venous thrombosis [Recovering/Resolving]
  - Diarrhoea [Unknown]
  - Inappropriate schedule of product administration [Unknown]
  - Malignant neoplasm progression [Unknown]

NARRATIVE: CASE EVENT DATE: 2018
